FAERS Safety Report 17855101 (Version 3)
Quarter: 2020Q2

REPORT INFORMATION
  Report Type: Report from Study
  Country: IL (occurrence: IL)
  Receive Date: 20200603
  Receipt Date: 20200624
  Transmission Date: 20200714
  Serious: Yes (Hospitalization, Other)
  Sender: FDA-Public Use
  Company Number: NVSC2020IL139629

PATIENT
  Age: 13 Month
  Sex: Male
  Weight: 7 kg

DRUGS (2)
  1. ZOLGENSMA [Suspect]
     Active Substance: ONASEMNOGENE ABEPARVOVEC-XIOI
     Indication: SPINAL MUSCULAR ATROPHY
     Dosage: UNK UNK, ONCE/SINGLE
     Route: 042
     Dates: start: 20200513
  2. PREDNISOLONE. [Concomitant]
     Active Substance: PREDNISOLONE
     Indication: PRODUCT USED FOR UNKNOWN INDICATION
     Dosage: 1 MG/KG, UNKNOWN
     Route: 065
     Dates: start: 20200512, end: 20200609

REACTIONS (5)
  - Pyrexia [Recovering/Resolving]
  - Alanine aminotransferase increased [Unknown]
  - Aspartate aminotransferase increased [Unknown]
  - Vomiting [Recovered/Resolved]
  - Hepatic enzyme increased [Not Recovered/Not Resolved]

NARRATIVE: CASE EVENT DATE: 20200516
